FAERS Safety Report 5712257-5 (Version None)
Quarter: 2008Q2

REPORT INFORMATION
  Report Type: 
  Country: None (occurrence: None)
  Receive Date: 20080417
  Receipt Date: 20080407
  Transmission Date: 20081010
  Serious: Yes (Other)
  Sender: FDA-Public Use
  Company Number: 231498J08USA

PATIENT
  Age: 40 Year
  Sex: Female

DRUGS (4)
  1. REBIF [Suspect]
     Indication: MULTIPLE SCLEROSIS
     Dosage: 44 MCG, 3 IN 1 WEEKS, SUBCUTANEOUS
     Route: 058
     Dates: start: 20061129
  2. EFFEXOR [Suspect]
     Indication: DEPRESSION
     Dosage: 150 MG, 1 IN 1 DAYS, ORAL; 75 MG, 1 IN 1 DAYS,  ORAL
     Route: 048
     Dates: end: 20080206
  3. EFFEXOR [Suspect]
     Indication: DEPRESSION
     Dosage: 150 MG, 1 IN 1 DAYS, ORAL; 75 MG, 1 IN 1 DAYS,  ORAL
     Route: 048
     Dates: start: 20080206
  4. TOPROL-XL [Concomitant]

REACTIONS (2)
  - PALPITATIONS [None]
  - VENTRICULAR EXTRASYSTOLES [None]
